FAERS Safety Report 7750728-0 (Version None)
Quarter: 2011Q3

REPORT INFORMATION
  Report Type: 
  Country: None (occurrence: None)
  Receive Date: 20110914
  Receipt Date: 20110908
  Transmission Date: 20111222
  Serious: Yes (Other)
  Sender: FDA-Public Use
  Company Number: TR-ABBOTT-11P-161-0852540-00

PATIENT
  Age: 72 Year
  Sex: Female

DRUGS (3)
  1. ADALIMUMAB [Suspect]
     Indication: RHEUMATOID ARTHRITIS
  2. ETANERCEPT [Suspect]
     Indication: RHEUMATOID ARTHRITIS
  3. STEROID [Concomitant]
     Indication: OSTEOARTHRITIS
     Route: 014

REACTIONS (14)
  - OSTEOSCLEROSIS [None]
  - PULMONARY TUBERCULOSIS [None]
  - JOINT TUBERCULOSIS [None]
  - ACTIVITIES OF DAILY LIVING IMPAIRED [None]
  - ATELECTASIS [None]
  - SLEEP DISORDER [None]
  - TRACHEAL DISORDER [None]
  - OSTEOPOROSIS [None]
  - ARTHRITIS [None]
  - OSTEOARTHRITIS [None]
  - JOINT EFFUSION [None]
  - BLOOD LACTATE DEHYDROGENASE INCREASED [None]
  - SYNOVIAL CYST [None]
  - WHITE BLOOD CELL COUNT INCREASED [None]
